FAERS Safety Report 8202413-9 (Version None)
Quarter: 2012Q1

REPORT INFORMATION
  Report Type: 
  Country: None (occurrence: None)
  Receive Date: 20120312
  Receipt Date: 20110805
  Transmission Date: 20120608
  Serious: Yes (Hospitalization)
  Sender: FDA-Public Use
  Company Number: US-ABBOTT-11P-163-0843131-00

PATIENT
  Sex: Male

DRUGS (1)
  1. DEPAKOTE [Suspect]
     Indication: EPILEPSY
     Dates: end: 20110201

REACTIONS (3)
  - AMMONIA INCREASED [None]
  - DRUG LEVEL FLUCTUATING [None]
  - ENCEPHALOPATHY [None]
